FAERS Safety Report 7172391-2 (Version None)
Quarter: 2010Q4

REPORT INFORMATION
  Report Type: 
  Country: None (occurrence: None)
  Receive Date: 20101217
  Receipt Date: 20100208
  Transmission Date: 20110411
  Serious: No
  Sender: FDA-Public Use
  Company Number: US-AMGEN-KDL391431

PATIENT

DRUGS (8)
  1. ENBREL [Suspect]
     Indication: RHEUMATOID ARTHRITIS
     Dosage: 50 MG, QWK
     Route: 058
     Dates: start: 20070202
  2. ENBREL [Suspect]
     Indication: PSORIATIC ARTHROPATHY
  3. METHOTREXATE [Concomitant]
     Dosage: UNK UNK, UNK
  4. TRAMADOL HCL [Concomitant]
     Dosage: UNK UNK, UNK
  5. OMEPRAZOLE [Concomitant]
     Dosage: UNK UNK, UNK
  6. FOLIC ACID [Concomitant]
     Dosage: UNK UNK, UNK
  7. AMITRIPTYLINE [Concomitant]
     Dosage: UNK UNK, UNK
  8. ESCITALOPRAM [Concomitant]
     Dosage: UNK UNK, UNK

REACTIONS (3)
  - PRURITUS [None]
  - PSORIASIS [None]
  - SKIN INFECTION [None]
